FAERS Safety Report 8844842 (Version 1)
Quarter: 2012Q4

REPORT INFORMATION
  Report Type: 
  Country: US (occurrence: US)
  Receive Date: 20121017
  Receipt Date: 20121017
  Transmission Date: 20130627
  Serious: No
  Sender: FDA-Public Use
  Company Number: US-PFIZER INC-2012254941

PATIENT
  Age: 77 Year
  Sex: Male
  Weight: 86.2 kg

DRUGS (4)
  1. SUTENT [Suspect]
     Indication: RENAL CANCER
     Dosage: 50 mg once daily for 15 days followed by 50 mg every other day
     Dates: start: 20120902
  2. SUTENT [Suspect]
     Dosage: 50 mg, 1x/day
  3. SUTENT [Suspect]
     Dosage: 50 mg, UNK
     Dates: end: 20121009
  4. ZOLPIDEM [Concomitant]
     Indication: SLEEP DISORDER
     Dosage: 10 mg, 1x/day at bed time

REACTIONS (4)
  - Vomiting [Not Recovered/Not Resolved]
  - Dysgeusia [Not Recovered/Not Resolved]
  - Abdominal pain [Unknown]
  - Oral pain [Recovered/Resolved]
